FAERS Safety Report 8972087 (Version 1)
Quarter: 2012Q4

REPORT INFORMATION
  Report Type: 
  Country: US (occurrence: US)
  Receive Date: 20121219
  Receipt Date: 20121219
  Transmission Date: 20130627
  Serious: Yes (Death)
  Sender: FDA-Public Use
  Company Number: US-ELI_LILLY_AND_COMPANY-US201212004497

PATIENT
  Sex: Male

DRUGS (1)
  1. HUMATROPE [Suspect]
     Indication: BODY HEIGHT BELOW NORMAL
     Dosage: 0.4 mg, qd
     Dates: start: 201202

REACTIONS (1)
  - Road traffic accident [Fatal]
